FAERS Safety Report 8136991-5 (Version None)
Quarter: 2012Q1

REPORT INFORMATION
  Report Type: 
  Country: None (occurrence: None)
  Receive Date: 20120215
  Receipt Date: 20120206
  Transmission Date: 20120608
  Serious: Yes (Hospitalization)
  Sender: FDA-Public Use
  Company Number: US-AMGEN-USASP2012007887

PATIENT
  Age: 71 Year
  Sex: Female

DRUGS (2)
  1. IMURAN [Concomitant]
     Dosage: UNK
  2. ENBREL [Suspect]
     Indication: SYSTEMIC LUPUS ERYTHEMATOSUS
     Dosage: 50 MG, Q2WK
     Dates: start: 20001001, end: 20100101

REACTIONS (10)
  - CARDIAC FAILURE CONGESTIVE [None]
  - ARTHRALGIA [None]
  - PULMONARY FIBROSIS [None]
  - BRONCHITIS [None]
  - PNEUMONIA [None]
  - SKIN ATROPHY [None]
  - PAIN IN EXTREMITY [None]
  - ATRIAL FIBRILLATION [None]
  - INTERSTITIAL LUNG DISEASE [None]
  - MALAISE [None]
